FAERS Safety Report 8236506-7 (Version None)
Quarter: 2012Q1

REPORT INFORMATION
  Report Type: 
  Country: None (occurrence: None)
  Receive Date: 20120327
  Receipt Date: 20120321
  Transmission Date: 20120608
  Serious: Yes (Life-Threatening, Disabling)
  Sender: FDA-Public Use
  Company Number: JP-ASTELLAS-2011JP006655

PATIENT
  Sex: Male
  Weight: 54 kg

DRUGS (8)
  1. GLAKAY [Concomitant]
     Dosage: 15 MG, TID
     Route: 048
     Dates: end: 20110829
  2. ASACOL [Concomitant]
     Indication: COLITIS ULCERATIVE
     Dosage: UNK
     Route: 048
     Dates: end: 20110829
  3. FAMOTIDINE [Concomitant]
     Dosage: 20 MG, UID/QD
     Route: 048
     Dates: end: 20110829
  4. MIYA BM [Concomitant]
     Indication: COLITIS ULCERATIVE
     Dosage: 2 DF, TID
     Route: 048
     Dates: end: 20110829
  5. PREDNISOLONE [Concomitant]
     Indication: COLITIS ULCERATIVE
     Dosage: 6.25 MG, BID
     Route: 048
     Dates: end: 20110829
  6. PROGRAF [Suspect]
     Indication: COLITIS ULCERATIVE
     Dosage: 3 MG, BID
     Route: 048
     Dates: start: 20110820, end: 20110828
  7. FERROUS CITRATE [Concomitant]
     Indication: COLITIS ULCERATIVE
     Dosage: 2 DF, UID/QD
     Route: 048
     Dates: end: 20110829
  8. LOPERAMIDE HCL [Concomitant]
     Indication: COLITIS ULCERATIVE
     Dosage: 1 MG, UID/QD
     Route: 048
     Dates: end: 20110829

REACTIONS (4)
  - RENAL FAILURE [None]
  - RESPIRATORY FAILURE [None]
  - SEPTIC SHOCK [None]
  - MULTI-ORGAN FAILURE [None]
